FAERS Safety Report 16084085 (Version 3)
Quarter: 2020Q1

REPORT INFORMATION
  Report Type: Spontaneous
  Country: US (occurrence: US)
  Receive Date: 20190318
  Receipt Date: 20200330
  Transmission Date: 20200409
  Serious: No
  Sender: FDA-Public Use
  Company Number: US-PFIZER INC-2019111791

PATIENT
  Age: 67 Year
  Sex: Female

DRUGS (1)
  1. IBRANCE [Suspect]
     Active Substance: PALBOCICLIB
     Indication: BREAST CANCER
     Dosage: 125 MG, CYCLIC ( TAKE 1 CAPSULE BY MOUTH DAILY ON DAYS 1-21 EVERY 28 DAYS )
     Route: 048
     Dates: start: 20180522

REACTIONS (4)
  - Dry skin [Unknown]
  - Nausea [Unknown]
  - Muscle spasms [Unknown]
  - Vomiting [Unknown]

NARRATIVE: CASE EVENT DATE: 202003
